FAERS Safety Report 8516980-9 (Version None)
Quarter: 2012Q3

REPORT INFORMATION
  Report Type: 
  Country: None (occurrence: None)
  Receive Date: 20120718
  Receipt Date: 20120716
  Transmission Date: 20120928
  Serious: Yes (Other)
  Sender: FDA-Public Use
  Company Number: BE-PFIZER INC-2012138141

PATIENT
  Age: 51 Year
  Sex: Male
  Weight: 92 kg

DRUGS (1)
  1. AXITINIB [Suspect]
     Indication: RENAL CANCER METASTATIC
     Dosage: 5 MG, 2X/DAY
     Route: 048
     Dates: start: 20120511

REACTIONS (2)
  - HEPATOTOXICITY [None]
  - HYPERBILIRUBINAEMIA [None]
